FAERS Safety Report 4553272-7 (Version None)
Quarter: 2005Q1

REPORT INFORMATION
  Report Type: 
  Country: None (occurrence: None)
  Receive Date: 20050113
  Receipt Date: 20041228
  Transmission Date: 20050727
  Serious: Yes (Hospitalization)
  Sender: FDA-Public Use
  Company Number: DSA_25544_2004

PATIENT
  Sex: Female

DRUGS (4)
  1. LORAZEPAM [Suspect]
     Dosage: DF ONCE PO
     Route: 048
     Dates: start: 20041222, end: 20041222
  2. FLUOXETINE [Suspect]
     Dosage: 100 MG ONCE PO
     Route: 048
     Dates: start: 20041222, end: 20041222
  3. LYOGEN - SLOW RELEASE [Suspect]
     Dosage: 120 MG ONCE PO
     Route: 048
     Dates: start: 20041222, end: 20041222
  4. CLONAZEPAM [Suspect]
     Dosage: 20 MG ONCE PO
     Route: 048
     Dates: start: 20041222, end: 20041222

REACTIONS (5)
  - FATIGUE [None]
  - MULTIPLE DRUG OVERDOSE [None]
  - NAUSEA [None]
  - TACHYCARDIA [None]
  - VOMITING [None]
